FAERS Safety Report 14027819 (Version 1)
Quarter: 2017Q3

REPORT INFORMATION
  Report Type: Spontaneous
  Country: JP (occurrence: JP)
  Receive Date: 20170929
  Receipt Date: 20170929
  Transmission Date: 20171128
  Serious: Yes (Hospitalization)
  Sender: FDA-Public Use
  Company Number: JP-TEVA-2017-JP-003208J

PATIENT
  Age: 69 Year
  Sex: Male

DRUGS (1)
  1. LEVOFLOXACIN TABLET 500MG ^TEVA^ [Suspect]
     Active Substance: LEVOFLOXACIN
     Indication: PRODUCT USED FOR UNKNOWN INDICATION
     Route: 065
     Dates: start: 201609, end: 201609

REACTIONS (1)
  - Hypercreatinaemia [Unknown]
